FAERS Safety Report 5504269-1 (Version None)
Quarter: 2007Q4

REPORT INFORMATION
  Report Type: 
  Country: None (occurrence: None)
  Receive Date: 20071101
  Receipt Date: 20071019
  Transmission Date: 20080405
  Serious: Yes (Death, Hospitalization)
  Sender: FDA-Public Use
  Company Number: GB-GENENTECH-250659

PATIENT

DRUGS (1)
  1. RITUXIMAB [Suspect]
     Indication: VASCULITIS

REACTIONS (2)
  - CLOSTRIDIAL INFECTION [None]
  - RENAL FAILURE [None]
